FAERS Safety Report 10336727 (Version 1)
Quarter: 2014Q3

REPORT INFORMATION
  Report Type: Spontaneous
  Country: US (occurrence: US)
  Receive Date: 20140723
  Receipt Date: 20140723
  Transmission Date: 20150326
  Serious: No
  Sender: FDA-Public Use
  Company Number: US-GALDERMA-US14000708

PATIENT
  Sex: Female

DRUGS (5)
  1. ORACEA [Suspect]
     Active Substance: DOXYCYCLINE
     Dosage: 40 MG
     Route: 048
     Dates: start: 201309
  2. ACANYA [Concomitant]
     Active Substance: BENZOYL PEROXIDE\CLINDAMYCIN PHOSPHATE
     Dosage: 1.2%/2/5%
     Route: 061
     Dates: start: 201309
  3. MIRVASO [Concomitant]
     Active Substance: BRIMONIDINE TARTRATE
     Dosage: 0.33%
     Route: 061
  4. TAZORAC [Concomitant]
     Active Substance: TAZAROTENE
     Route: 061
     Dates: start: 201309
  5. CETAPHIL FACE WASH [Concomitant]
     Route: 061
     Dates: start: 2012

REACTIONS (1)
  - Off label use [Recovered/Resolved]
